FAERS Safety Report 12070556 (Version 1)
Quarter: 2016Q1

REPORT INFORMATION
  Report Type: Report from Study
  Country: US (occurrence: US)
  Receive Date: 20160211
  Receipt Date: 20160211
  Transmission Date: 20160526
  Serious: Yes (Hospitalization)
  Sender: FDA-Public Use
  Company Number: US-ACTELION-A-US2016-131131

PATIENT
  Age: 58 Year
  Sex: Female

DRUGS (1)
  1. MACITENTAN [Suspect]
     Active Substance: MACITENTAN
     Indication: PULMONARY ARTERIAL HYPERTENSION
     Dosage: 10 MG, UNK
     Route: 048
     Dates: end: 201601

REACTIONS (8)
  - Swelling [Unknown]
  - Device issue [Unknown]
  - Pulmonary arterial hypertension [Unknown]
  - Headache [Unknown]
  - Confusional state [Unknown]
  - Carbon monoxide poisoning [Unknown]
  - Fatigue [Unknown]
  - Weight increased [Unknown]
